FAERS Safety Report 19034357 (Version 1)
Quarter: 2021Q1

REPORT INFORMATION
  Report Type: Spontaneous
  Country: US (occurrence: US)
  Receive Date: 20210319
  Receipt Date: 20210319
  Transmission Date: 20210420
  Serious: Yes (Congenital Anomaly)
  Sender: FDA-Public Use
  Company Number: US-KASDIRECT-2021-US-004589

PATIENT
  Age: 34 Year
  Sex: Female
  Weight: 90.72 kg

DRUGS (3)
  1. BABYGANICS ALCOHOL?FREE HAND SANITIZER WIPES MANDARIN [Suspect]
     Active Substance: BENZALKONIUM CHLORIDE
     Indication: INFECTION PROPHYLAXIS
     Dosage: MULTIPLE USES DAILY
     Route: 061
     Dates: start: 20200401, end: 20201216
  2. FOLIC ACID. [Concomitant]
     Active Substance: FOLIC ACID
  3. PRENATAL VITAMINS [Concomitant]
     Active Substance: VITAMINS

REACTIONS (2)
  - Exposure during pregnancy [Not Recovered/Not Resolved]
  - Foetal malformation [Not Recovered/Not Resolved]

NARRATIVE: CASE EVENT DATE: 202004
